FAERS Safety Report 23862949 (Version 2)
Quarter: 2024Q2

REPORT INFORMATION
  Report Type: Spontaneous
  Country: BG (occurrence: BG)
  Receive Date: 20240516
  Receipt Date: 20240612
  Transmission Date: 20240716
  Serious: Yes (Hospitalization)
  Sender: FDA-Public Use
  Company Number: BG-MYLANLABS-2024M1044549

PATIENT
  Age: 82 Year
  Sex: Male

DRUGS (2)
  1. TEVETEN [Suspect]
     Active Substance: EPROSARTAN MESYLATE
     Indication: Hypertension
     Dosage: 600 MILLIGRAM, QD
     Route: 048
  2. TEVETEN [Suspect]
     Active Substance: EPROSARTAN MESYLATE
     Dosage: 300 MILLIGRAM, QD, HALF TABLET
     Route: 048
     Dates: start: 202212

REACTIONS (2)
  - Squamous cell carcinoma [Unknown]
  - Off label use [Unknown]
